FAERS Safety Report 9126629 (Version 1)
Quarter: 2013Q1

REPORT INFORMATION
  Report Type: Spontaneous
  Country: FR (occurrence: FR)
  Receive Date: 20130117
  Receipt Date: 20130117
  Transmission Date: 20140127
  Serious: Yes (Hospitalization)
  Sender: FDA-Public Use
  Company Number: FR-MUTUAL PHARMACEUTICAL COMPANY, INC.-IBPF20130002

PATIENT
  Age: 0 Year
  Sex: Male

DRUGS (12)
  1. PEDA  (IBUPROFEN SOLUTION FOR INJECTION) [Suspect]
     Indication: PATENT DUCTUS ARTERIOSUS
     Route: 042
     Dates: start: 20120404, end: 20120404
  2. PEDA [Suspect]
     Route: 042
     Dates: start: 20120405, end: 20120405
  3. HYPNOVEL (MIDAZOLAM) [Concomitant]
     Indication: PRODUCT USED FOR UNKNOWN INDICATION
  4. VANCOMYCIN [Concomitant]
     Indication: PRODUCT USED FOR UNKNOWN INDICATION
  5. INSULIN [Concomitant]
     Indication: PRODUCT USED FOR UNKNOWN INDICATION
  6. NUBAN (NALBUPHINE CHLOROHYDRATE) [Concomitant]
     Indication: PRODUCT USED FOR UNKNOWN INDICATION
  7. BACILOR (LACTOBACILLUS CASEI RHAMNOUS VARIETY) [Concomitant]
     Indication: PRODUCT USED FOR UNKNOWN INDICATION
  8. CLAFORAN (CEFOTAXIME) [Concomitant]
     Indication: PRODUCT USED FOR UNKNOWN INDICATION
  9. AMIKLIN (AMIKACIN) [Concomitant]
     Indication: PRODUCT USED FOR UNKNOWN INDICATION
  10. MOPRAL (OMEPRAZOLE) [Concomitant]
     Indication: PRODUCT USED FOR UNKNOWN INDICATION
  11. CAFFEINE [Concomitant]
     Indication: PRODUCT USED FOR UNKNOWN INDICATION
  12. SUFENTA (SUFENTANIL) [Concomitant]
     Indication: PRODUCT USED FOR UNKNOWN INDICATION

REACTIONS (2)
  - Large intestine perforation [Unknown]
  - Renal failure [Unknown]
